FAERS Safety Report 5680083-1 (Version None)
Quarter: 2008Q1

REPORT INFORMATION
  Report Type: 
  Country: None (occurrence: None)
  Receive Date: 20080326
  Receipt Date: 20080125
  Transmission Date: 20080703
  Serious: No
  Sender: FDA-Public Use
  Company Number: US-BAYER-US-2007-043381

PATIENT
  Age: 27 Year
  Sex: Female

DRUGS (2)
  1. MAGNEVIST [Suspect]
     Indication: NUCLEAR MAGNETIC RESONANCE IMAGING
     Dosage: UNIT DOSE: 20 ML
     Route: 042
     Dates: start: 20071026, end: 20071026
  2. PERCOCET [Concomitant]

REACTIONS (2)
  - PRURITUS [None]
  - URTICARIA [None]
